FAERS Safety Report 6435084-2 (Version None)
Quarter: 2009Q4

REPORT INFORMATION
  Report Type: 
  Country: None (occurrence: None)
  Receive Date: 20091109
  Receipt Date: 20091109
  Transmission Date: 20100525
  Serious: Yes (Hospitalization)
  Sender: FDA-Public Use
  Company Number: None

PATIENT
  Sex: Female
  Weight: 76 kg

DRUGS (2)
  1. ALIMTA [Suspect]
     Dosage: 945 MG
  2. CISPLATIN [Suspect]
     Dosage: 95 MG

REACTIONS (5)
  - ANAEMIA [None]
  - INFECTION [None]
  - THROMBOCYTOPENIA [None]
  - VAGINAL HAEMORRHAGE [None]
  - VISION BLURRED [None]
